FAERS Safety Report 5730366-1 (Version None)
Quarter: 2008Q2

REPORT INFORMATION
  Report Type: 
  Country: None (occurrence: None)
  Receive Date: 20080502
  Receipt Date: 20080422
  Transmission Date: 20081010
  Serious: Yes (Life-Threatening, Other)
  Sender: FDA-Public Use
  Company Number: THYR-10503

PATIENT
  Age: 53 Year
  Sex: Female
  Weight: 97.5 kg

DRUGS (10)
  1. THYROGEN [Suspect]
     Indication: DIAGNOSTIC PROCEDURE
     Dosage: 0.9 MG, QD, INTRAMUSCULAR
     Route: 030
     Dates: start: 20071115, end: 20071116
  2. ALTACE [Concomitant]
  3. PREVACID [Concomitant]
  4. HYDROCHLOROTHIAZIDE [Concomitant]
  5. CALCIUM (CALCIUM CARBONATE, CALCIUM LACTOGLUCONATE) [Concomitant]
  6. VITAMIN D [Concomitant]
  7. ALPRAZOLAM [Concomitant]
  8. SYNTHROID [Concomitant]
  9. ESTROGEL [Concomitant]
  10. XANAX [Concomitant]

REACTIONS (6)
  - INJECTION SITE RASH [None]
  - INSOMNIA [None]
  - NAUSEA [None]
  - PANIC ATTACK [None]
  - SUICIDAL IDEATION [None]
  - SUICIDE ATTEMPT [None]
